FAERS Safety Report 8383498-6 (Version None)
Quarter: 2012Q2

REPORT INFORMATION
  Report Type: 
  Country: None (occurrence: None)
  Receive Date: 20120524
  Receipt Date: 20120522
  Transmission Date: 20120825
  Serious: Yes (Life-Threatening, Hospitalization, Other)
  Sender: FDA-Public Use
  Company Number: PHHY2012FR017346

PATIENT
  Age: 18 Year
  Sex: Male
  Weight: 60 kg

DRUGS (5)
  1. CLOZAPINE [Suspect]
     Dates: start: 20100201, end: 20111101
  2. CLONAZEPAM [Concomitant]
     Dosage: UNK UKN, UNK
  3. ATARAX [Concomitant]
     Dosage: UNK UKN, UNK
  4. LOXAPINE HCL [Concomitant]
     Dosage: 10 DROPS TID
     Dates: start: 20100101
  5. CLOZAPINE [Suspect]
     Dosage: 400 MG, DAILY
     Dates: start: 20060101

REACTIONS (11)
  - LEFT VENTRICULAR HYPERTROPHY [None]
  - EJECTION FRACTION DECREASED [None]
  - CLONUS [None]
  - VENTRICULAR TACHYCARDIA [None]
  - PSYCHOTIC DISORDER [None]
  - BLOOD ALKALINE PHOSPHATASE INCREASED [None]
  - CARDIOMYOPATHY [None]
  - MALAISE [None]
  - DILATATION VENTRICULAR [None]
  - LOSS OF CONSCIOUSNESS [None]
  - N-TERMINAL PROHORMONE BRAIN NATRIURETIC PEPTIDE INCREASED [None]
